FAERS Safety Report 5239907-4 (Version None)
Quarter: 2007Q1

REPORT INFORMATION
  Report Type: 
  Country: None (occurrence: None)
  Receive Date: 20070216
  Receipt Date: 20070206
  Transmission Date: 20070707
  Serious: Yes (Hospitalization, Other)
  Sender: FDA-Public Use
  Company Number: US-PFIZER INC-2005133251

PATIENT
  Sex: Female
  Weight: 59.9 kg

DRUGS (7)
  1. NEURONTIN [Suspect]
     Indication: BIPOLAR DISORDER
     Route: 048
  2. KLONOPIN [Suspect]
     Route: 048
  3. SEROQUEL [Suspect]
     Route: 048
  4. COGENTIN [Suspect]
  5. COCAINE [Suspect]
  6. ALCOHOL [Suspect]
  7. ATIVAN [Concomitant]
     Indication: AGITATION
     Route: 048

REACTIONS (4)
  - DRUG INEFFECTIVE FOR UNAPPROVED INDICATION [None]
  - MAJOR DEPRESSION [None]
  - MULTIPLE DRUG OVERDOSE [None]
  - SUICIDE ATTEMPT [None]
